FAERS Safety Report 8102433-9 (Version None)
Quarter: 2012Q1

REPORT INFORMATION
  Report Type: 
  Country: None (occurrence: None)
  Receive Date: 20120131
  Receipt Date: 20120131
  Transmission Date: 20120608
  Serious: Yes (Hospitalization, Disabling)
  Sender: FDA-Public Use
  Company Number: None

PATIENT
  Age: 73 Year
  Sex: Female
  Weight: 52.1637 kg

DRUGS (2)
  1. LEVAQUIN [Suspect]
     Indication: CYSTITIS
     Dosage: 500 MG PO; 500 MG PO
     Route: 048
     Dates: start: 20101201
  2. LEVAQUIN [Suspect]
     Indication: CYSTITIS
     Dosage: 500 MG PO; 500 MG PO
     Route: 048
     Dates: start: 20110120

REACTIONS (2)
  - ROTATOR CUFF SYNDROME [None]
  - SURGICAL PROCEDURE REPEATED [None]
